FAERS Safety Report 6706433-2 (Version None)
Quarter: 2010Q2

REPORT INFORMATION
  Report Type: 
  Country: None (occurrence: None)
  Receive Date: 20100503
  Receipt Date: 20100423
  Transmission Date: 20101027
  Serious: Yes (Hospitalization, Other)
  Sender: FDA-Public Use
  Company Number: PHHO2006FR07535

PATIENT
  Sex: Female
  Weight: 70 kg

DRUGS (1)
  1. CGS 20267 T30748+ [Suspect]
     Indication: BREAST CANCER
     Dosage: 2.5 MG, QD
     Route: 048
     Dates: start: 20011003, end: 20060517

REACTIONS (32)
  - ASTHENIA [None]
  - ATRIAL HYPERTROPHY [None]
  - AZOTAEMIA [None]
  - BALANCE DISORDER [None]
  - BLOOD CREATININE ABNORMAL [None]
  - BRAIN NATRIURETIC PEPTIDE INCREASED [None]
  - CARDIAC DISORDER [None]
  - CARDIAC INDEX DECREASED [None]
  - CARDIAC MURMUR [None]
  - CARDIAC RESYNCHRONISATION THERAPY [None]
  - CARDIOMEGALY [None]
  - CARDIOTOXICITY [None]
  - CHEST DISCOMFORT [None]
  - CONGESTIVE CARDIOMYOPATHY [None]
  - DYSPNOEA [None]
  - EPISTAXIS [None]
  - GINGIVAL BLEEDING [None]
  - HEART RATE DECREASED [None]
  - HOT FLUSH [None]
  - HYPOKINESIA [None]
  - LEFT VENTRICULAR HYPERTROPHY [None]
  - MITRAL VALVE INCOMPETENCE [None]
  - OEDEMA PERIPHERAL [None]
  - PANIC ATTACK [None]
  - PULMONARY ARTERIAL HYPERTENSION [None]
  - RALES [None]
  - RENAL FAILURE [None]
  - SINUS TACHYCARDIA [None]
  - TRICUSPID VALVE INCOMPETENCE [None]
  - VENTRICULAR DYSFUNCTION [None]
  - VERTIGO [None]
  - WEIGHT INCREASED [None]
